FAERS Safety Report 4876160-5 (Version None)
Quarter: 2005Q4

REPORT INFORMATION
  Report Type: 
  Country: None (occurrence: None)
  Receive Date: 20051205
  Receipt Date: 20050829
  Transmission Date: 20060501
  Serious: No
  Sender: FDA-Public Use
  Company Number: USA0508106665

PATIENT
  Sex: Male

DRUGS (4)
  1. ALIMTA [Suspect]
     Dates: start: 20050701
  2. VITAMIN B-12 [Concomitant]
  3. FOLIC ACID [Concomitant]
  4. IBUPROFEN [Concomitant]

REACTIONS (4)
  - JOINT SWELLING [None]
  - OEDEMA PERIPHERAL [None]
  - PSORIASIS [None]
  - RASH GENERALISED [None]
